FAERS Safety Report 8487946-2 (Version None)
Quarter: 2012Q3

REPORT INFORMATION
  Report Type: 
  Country: None (occurrence: None)
  Receive Date: 20120705
  Receipt Date: 20120625
  Transmission Date: 20120928
  Serious: Yes (Hospitalization, Other)
  Sender: FDA-Public Use
  Company Number: PHHY2012BR007396

PATIENT
  Sex: Female

DRUGS (8)
  1. DIOVAN HCT [Suspect]
     Indication: HYPERTENSION
     Dosage: 1 TABLETS (160/12.5 MG) DAILY
     Route: 048
  2. SIMVASTATIN [Concomitant]
     Dosage: 20 MG, UNK
  3. ACETAMINOPHEN W/ CODEINE [Concomitant]
     Dosage: UNK
  4. BROMAZEPAM [Concomitant]
     Indication: INSOMNIA
     Dosage: 6 MG, (1 TABLET A DAY)
     Route: 048
  5. OMEPRAZOLE [Concomitant]
     Indication: DYSPEPSIA
     Dosage: 1 DF, UNK
     Route: 048
  6. PLAMET [Concomitant]
     Dosage: 20 MG, UNK
  7. METFORMIN HCL [Suspect]
     Indication: DIABETES MELLITUS
     Dosage: 1 TABLET DAILY(VILDAGLIPTIN 50 AND METFORMIN 850MG)
     Route: 048
  8. INSULIN [Suspect]
     Indication: DIABETES MELLITUS
     Dosage: UNK UKN, ONE APPLICATION IN THE MORNING AND 1 APPLICATION AT NIGHT

REACTIONS (12)
  - OPEN WOUND [None]
  - HERNIA [None]
  - SKIN DISCOLOURATION [None]
  - SEROMA [None]
  - PERIPHERAL NERVE LESION [None]
  - SPINAL CORD DISORDER [None]
  - BACK PAIN [None]
  - DIVERTICULITIS [None]
  - ABDOMINAL NEOPLASM [None]
  - NEOPLASM [None]
  - ABDOMINAL DISTENSION [None]
  - PAIN [None]
